FAERS Safety Report 5131840-1 (Version None)
Quarter: 2006Q4

REPORT INFORMATION
  Report Type: 
  Country: None (occurrence: None)
  Receive Date: 20061016
  Receipt Date: 20061005
  Transmission Date: 20070319
  Serious: Yes (Other)
  Sender: FDA-Public Use
  Company Number: 2006123469

PATIENT
  Age: 41 Year
  Sex: Female
  Weight: 78.9259 kg

DRUGS (3)
  1. LIPITOR [Suspect]
     Indication: BLOOD CHOLESTEROL INCREASED
     Dosage: 10 MG (10 MG, 1 IN 1 D) ORAL
     Route: 048
     Dates: start: 20051201
  2. SYNTHROID [Concomitant]
  3. ALLEGRA [Concomitant]

REACTIONS (1)
  - BLOOD BILIRUBIN INCREASED [None]
